FAERS Safety Report 8531665-0 (Version None)
Quarter: 2012Q3

REPORT INFORMATION
  Report Type: 
  Country: None (occurrence: None)
  Receive Date: 20120723
  Receipt Date: 20120709
  Transmission Date: 20120928
  Serious: No
  Sender: FDA-Public Use
  Company Number: US-ASTRAZENECA-2012SE47262

PATIENT
  Age: 55 Year
  Sex: Female

DRUGS (2)
  1. PREVACID [Suspect]
     Route: 065
  2. NEXIUM [Suspect]
     Route: 048

REACTIONS (3)
  - GASTROOESOPHAGEAL REFLUX DISEASE [None]
  - ASTHMA [None]
  - DRUG DOSE OMISSION [None]
